FAERS Safety Report 21483484 (Version 3)
Quarter: 2022Q4

REPORT INFORMATION
  Report Type: Spontaneous
  Country: JP (occurrence: JP)
  Receive Date: 20221020
  Receipt Date: 20221201
  Transmission Date: 20230113
  Serious: Yes (Death, Hospitalization)
  Sender: FDA-Public Use
  Company Number: JP-CHUGAI-2022040269

PATIENT
  Age: 78 Year
  Sex: Male
  Weight: 64 kg

DRUGS (3)
  1. AVASTIN [Suspect]
     Active Substance: BEVACIZUMAB
     Indication: Hepatocellular carcinoma
     Dosage: 900 MILLIGRAM, SINGLE
     Route: 041
     Dates: start: 20220927, end: 20220927
  2. TECENTRIQ [Suspect]
     Active Substance: ATEZOLIZUMAB
     Indication: Hepatocellular carcinoma
     Dosage: 1200 MILLIGRAM, SINGLE
     Route: 041
     Dates: start: 20220927, end: 20220927
  3. SODIUM CHLORIDE [Concomitant]
     Active Substance: SODIUM CHLORIDE
     Dosage: UNK
     Route: 041
     Dates: start: 20220927, end: 20220927

REACTIONS (2)
  - Liver carcinoma ruptured [Fatal]
  - Hepatic failure [Fatal]

NARRATIVE: CASE EVENT DATE: 20220930
